FAERS Safety Report 7720920-X (Version None)
Quarter: 2011Q3

REPORT INFORMATION
  Report Type: 
  Country: None (occurrence: None)
  Receive Date: 20110831
  Receipt Date: 20110826
  Transmission Date: 20111222
  Serious: Yes (Death, Other)
  Sender: FDA-Public Use
  Company Number: PHHY2011GB76322

PATIENT
  Age: 92 Year
  Sex: Female
  Weight: 64 kg

DRUGS (15)
  1. ZIPZOC [Concomitant]
  2. CLOPIDOGREL [Interacting]
     Indication: CEREBROVASCULAR ACCIDENT PROPHYLAXIS
     Dates: start: 20110505, end: 20110604
  3. CALCICHEW D3 [Concomitant]
  4. DORZOLAMIDE HYDROCHLORIDE [Concomitant]
  5. PREDNISOLONE [Interacting]
     Dosage: 10 MG, UNK
     Route: 065
  6. FLOXACILLIN SODIUM [Concomitant]
  7. METFORMIN [Concomitant]
  8. CANDESARTAN CILEXETIL [Concomitant]
  9. ALENDRONIC ACID [Concomitant]
  10. FUROSEMIDE [Concomitant]
  11. INADINE [Concomitant]
  12. PREDNISOLONE [Suspect]
     Indication: ARTERITIS
     Dosage: 40 MG, UNK
     Route: 065
     Dates: start: 20110517
  13. DOUBLEBASE [Concomitant]
  14. LANSOPRAZOLE [Concomitant]
  15. LATANOPROST [Concomitant]

REACTIONS (2)
  - DUODENAL ULCER HAEMORRHAGE [None]
  - DRUG INTERACTION [None]
